FAERS Safety Report 16157281 (Version 1)
Quarter: 2019Q2

REPORT INFORMATION
  Report Type: Spontaneous
  Country: US (occurrence: US)
  Receive Date: 20190403
  Receipt Date: 20190403
  Transmission Date: 20190711
  Serious: Yes (Death, Hospitalization)
  Sender: FDA-Public Use
  Company Number: None

PATIENT
  Age: 71 Year
  Sex: Female
  Weight: 67.5 kg

DRUGS (10)
  1. PROLIA [Concomitant]
     Active Substance: DENOSUMAB
  2. FOSAMAX [Concomitant]
     Active Substance: ALENDRONATE SODIUM
  3. PROLIA [Suspect]
     Active Substance: DENOSUMAB
     Indication: OSTEOPOROSIS
     Route: 030
     Dates: start: 20170404, end: 20171005
  4. NORVASC [Concomitant]
     Active Substance: AMLODIPINE BESYLATE
  5. CALCIUM [Concomitant]
     Active Substance: CALCIUM
  6. TENORMIN [Concomitant]
     Active Substance: ATENOLOL
  7. ZOCOR [Concomitant]
     Active Substance: SIMVASTATIN
  8. ACTINOL [Concomitant]
  9. VITAMIN [Concomitant]
     Active Substance: VITAMINS
  10. VIT D [Concomitant]
     Active Substance: VITAMIN D NOS

REACTIONS (2)
  - Haemophagocytic lymphohistiocytosis [None]
  - Product complaint [None]

NARRATIVE: CASE EVENT DATE: 20170515
